FAERS Safety Report 6151585-9 (Version None)
Quarter: 2009Q2

REPORT INFORMATION
  Report Type: 
  Country: None (occurrence: None)
  Receive Date: 20090410
  Receipt Date: 20090401
  Transmission Date: 20091009
  Serious: Yes (Other)
  Sender: FDA-Public Use
  Company Number: CZ-JNJFOC-20090400960

PATIENT
  Sex: Female

DRUGS (9)
  1. REMICADE [Suspect]
     Route: 042
  2. REMICADE [Suspect]
     Indication: PSORIATIC ARTHROPATHY
     Route: 042
  3. HYDROCORTISONE [Concomitant]
     Route: 042
  4. ANTIHISTAMINE [Concomitant]
     Route: 048
  5. METHOTREXATE [Concomitant]
  6. MEDROL [Concomitant]
  7. HELICID [Concomitant]
  8. ACIDUM FOLICUM [Concomitant]
  9. IBALGIN [Concomitant]

REACTIONS (7)
  - BRONCHOSPASM [None]
  - DYSPNOEA [None]
  - HYPERHIDROSIS [None]
  - HYPOTENSION [None]
  - INFUSION RELATED REACTION [None]
  - PALPITATIONS [None]
  - TACHYCARDIA [None]
